FAERS Safety Report 10021541 (Version 2)
Quarter: 2014Q1

REPORT INFORMATION
  Report Type: Spontaneous
  Country: US (occurrence: US)
  Receive Date: 20140319
  Receipt Date: 20140319
  Transmission Date: 20141002
  Serious: No
  Sender: FDA-Public Use
  Company Number: US-ASTRAZENECA-2012SE57707

PATIENT
  Age: 63 Year
  Sex: Female
  Weight: 63 kg

DRUGS (7)
  1. NEXIUM [Suspect]
     Indication: GASTROOESOPHAGEAL REFLUX DISEASE
     Route: 048
     Dates: start: 2010, end: 20131201
  2. NEXIUM [Suspect]
     Indication: GASTROOESOPHAGEAL REFLUX DISEASE
     Route: 048
     Dates: end: 20140107
  3. TOPROL XL [Suspect]
     Indication: HYPERTENSION
     Route: 048
     Dates: start: 2010
  4. SULINDAC [Concomitant]
     Indication: OSTEOARTHRITIS
  5. BABY ASPIRIN [Concomitant]
  6. MEDROXYTHR AC/ESTRADIOL BARR [Concomitant]
     Indication: HORMONE REPLACEMENT THERAPY
  7. HYDROCODONE/ACETAMINOPHEN [Concomitant]
     Indication: PAIN

REACTIONS (4)
  - Limb asymmetry [Not Recovered/Not Resolved]
  - Poor quality sleep [Unknown]
  - Abdominal pain upper [Not Recovered/Not Resolved]
  - Drug dose omission [Not Recovered/Not Resolved]
